FAERS Safety Report 14425545 (Version 13)
Quarter: 2024Q1

REPORT INFORMATION
  Report Type: Spontaneous
  Country: ES (occurrence: ES)
  Receive Date: 20180123
  Receipt Date: 20240229
  Transmission Date: 20240409
  Serious: Yes (Death, Life-Threatening, Hospitalization, Other)
  Sender: FDA-Public Use
  Company Number: PHHY2018ES000491

PATIENT
  Age: 79 Year
  Sex: Male

DRUGS (12)
  1. RIFAMPIN [Suspect]
     Active Substance: RIFAMPIN
     Indication: Type 2 lepra reaction
     Dosage: 300 MG, QMO
     Route: 065
  2. CLOFAZIMINE [Suspect]
     Active Substance: CLOFAZIMINE
     Indication: Type 2 lepra reaction
     Dosage: 50 MG, QD
     Route: 065
  3. DAPSONE [Suspect]
     Active Substance: DAPSONE
     Indication: Type 2 lepra reaction
     Dosage: 100 MG, QD
     Route: 065
  4. MYFORTIC [Suspect]
     Active Substance: MYCOPHENOLATE SODIUM
     Indication: Glomerulonephritis proliferative
     Dosage: 360 MG, Q12H
     Route: 065
     Dates: start: 201105, end: 201106
  5. MYCOPHENOLATE SODIUM [Suspect]
     Active Substance: MYCOPHENOLATE SODIUM
     Indication: Product used for unknown indication
     Dosage: 360 MG, Q12H
     Route: 065
     Dates: start: 20110501, end: 20110601
  6. MYCOPHENOLATE SODIUM [Suspect]
     Active Substance: MYCOPHENOLATE SODIUM
     Dosage: 360 MG, Q12H
     Route: 065
     Dates: start: 20110501, end: 20110601
  7. METHYLPREDNISOLONE [Suspect]
     Active Substance: METHYLPREDNISOLONE
     Indication: Glomerulonephritis proliferative
     Dosage: PROGRESSIVELY DECREASING DOSE
     Route: 065
  8. METHYLPREDNISOLONE [Suspect]
     Active Substance: METHYLPREDNISOLONE
     Dosage: THREE BOLUSES ( 500 MG)
     Route: 065
     Dates: start: 20110330
  9. CYCLOPHOSPHAMIDE [Suspect]
     Active Substance: CYCLOPHOSPHAMIDE
     Indication: Glomerulonephritis proliferative
     Dosage: 100 MG, QD
     Route: 048
     Dates: start: 20110101
  10. PREDNISONE [Suspect]
     Active Substance: PREDNISONE
     Indication: Glomerulonephritis proliferative
     Dosage: GRADUAL DOSE REDUCTION
     Route: 065
     Dates: start: 2011
  11. PREDNISONE [Suspect]
     Active Substance: PREDNISONE
     Dosage: UNK
     Route: 065
     Dates: start: 201106
  12. PREDNISONE [Suspect]
     Active Substance: PREDNISONE
     Dosage: 70.000MG QD
     Route: 065
     Dates: start: 20110311

REACTIONS (6)
  - Infection reactivation [Fatal]
  - Pancytopenia [Fatal]
  - Pericardial haemorrhage [Fatal]
  - Pneumonia [Unknown]
  - Haemolytic anaemia [Unknown]
  - Drug ineffective [Unknown]

NARRATIVE: CASE EVENT DATE: 20110101
